FAERS Safety Report 4990423-4 (Version None)
Quarter: 2006Q2

REPORT INFORMATION
  Report Type: 
  Country: None (occurrence: None)
  Receive Date: 20060501
  Receipt Date: 20060501
  Transmission Date: 20061013
  Serious: Yes (Hospitalization)
  Sender: FDA-Public Use
  Company Number: None

PATIENT

DRUGS (1)
  1. ZOLOFT [Suspect]
     Dosage: 100 MG   TWICE DAILY
     Dates: start: 19930101, end: 20060301

REACTIONS (6)
  - ABNORMAL BEHAVIOUR [None]
  - CONVULSION [None]
  - CRYING [None]
  - DRUG EFFECT DECREASED [None]
  - PERSONALITY CHANGE [None]
  - SUICIDAL IDEATION [None]
